FAERS Safety Report 14279884 (Version 2)
Quarter: 2018Q1

REPORT INFORMATION
  Report Type: Spontaneous
  Country: US (occurrence: US)
  Receive Date: 20171212
  Receipt Date: 20180103
  Transmission Date: 20180508
  Serious: No
  Sender: FDA-Public Use
  Company Number: US-MERZ NORTH AMERICA, INC.-17MRZ-00417

PATIENT
  Sex: Female

DRUGS (4)
  1. XEOMIN [Suspect]
     Active Substance: INCOBOTULINUMTOXINA
     Dosage: 18 UNITS  TO FOREHEAD AND CROWS FEET
     Route: 065
     Dates: start: 20171025, end: 20171025
  2. XEOMIN [Suspect]
     Active Substance: INCOBOTULINUMTOXINA
     Indication: SKIN COSMETIC PROCEDURE
     Dosage: 60 UNITS TO FOREHEAD, GLABELLAR, CROWS FEET
     Route: 065
     Dates: start: 20171011, end: 20171011
  3. ALPRAZOLAM. [Concomitant]
     Active Substance: ALPRAZOLAM
  4. XEOMIN [Suspect]
     Active Substance: INCOBOTULINUMTOXINA
     Dosage: 40 UNITS TO ^SAME AREAS^
     Route: 065
     Dates: start: 20171206, end: 20171206

REACTIONS (1)
  - Drug ineffective [Unknown]
